FAERS Safety Report 9534696 (Version 1)
Quarter: 2013Q3

REPORT INFORMATION
  Report Type: Spontaneous
  Country: FR (occurrence: FR)
  Receive Date: 20130918
  Receipt Date: 20130918
  Transmission Date: 20140515
  Serious: Yes (Hospitalization, Other)
  Sender: FDA-Public Use
  Company Number: FR-PFIZER INC-2013263671

PATIENT
  Age: 65 Year
  Sex: Male

DRUGS (4)
  1. CADUET [Suspect]
     Indication: HYPERTENSION
     Dosage: 10MG/ 10 MG, 1X/DAY
     Route: 048
     Dates: start: 200711, end: 20081121
  2. COLCHIMAX [Suspect]
     Indication: GOUT
     Dosage: 1 MG, 1 TO 3 TABLETS DAILY
     Route: 048
     Dates: start: 2000, end: 20081121
  3. INIPOMP [Concomitant]
     Indication: HIATUS HERNIA
     Dosage: 20 MG, 1X/DAY
     Route: 048
     Dates: start: 200801
  4. DOLIPRANE [Concomitant]
     Dosage: 1 G, AS NEEDED
     Route: 048

REACTIONS (3)
  - Bone marrow failure [Recovered/Resolved]
  - Arthritis bacterial [Recovering/Resolving]
  - Lung disorder [Recovered/Resolved]
